FAERS Safety Report 17871175 (Version 1)
Quarter: 2020Q2

REPORT INFORMATION
  Report Type: Spontaneous
  Country: US (occurrence: US)
  Receive Date: 20200608
  Receipt Date: 20200608
  Transmission Date: 20200714
  Serious: Yes (Disabling)
  Sender: FDA-Public Use
  Company Number: None

PATIENT
  Age: 26 Year
  Sex: Female
  Weight: 54.9 kg

DRUGS (23)
  1. BREO ELLIPTA [Concomitant]
     Active Substance: FLUTICASONE FUROATE\VILANTEROL TRIFENATATE
  2. T: SLIM 3ML CARTRIDGES [Concomitant]
  3. GLUCAGON. [Concomitant]
     Active Substance: GLUCAGON
  4. EPIPEN [Concomitant]
     Active Substance: EPINEPHRINE
  5. FISH OIL [Concomitant]
     Active Substance: FISH OIL
  6. DEXCOM G6 SENSORS [Concomitant]
  7. ALBUTEROL. [Concomitant]
     Active Substance: ALBUTEROL
  8. ALPHA LIPOIC ACID [Concomitant]
     Active Substance: .ALPHA.-LIPOIC ACID
  9. FOLATE [Concomitant]
     Active Substance: FOLATE SODIUM
  10. RESVERATROL [Concomitant]
     Active Substance: DIETARY SUPPLEMENT\RESVERATROL
  11. NOVOLOG [Concomitant]
     Active Substance: INSULIN ASPART
  12. MULTIVITAMIN [Concomitant]
     Active Substance: VITAMINS
  13. VRAYLAR [Suspect]
     Active Substance: CARIPRAZINE
     Indication: SCHIZOAFFECTIVE DISORDER BIPOLAR TYPE
     Route: 048
     Dates: start: 20180801, end: 20190701
  14. LEXAPRO [Concomitant]
     Active Substance: ESCITALOPRAM OXALATE
  15. LITHIUM. [Concomitant]
     Active Substance: LITHIUM
  16. DEXCOM G6 TRANSMITTER [Concomitant]
  17. ZYRTEC [Concomitant]
     Active Substance: CETIRIZINE HYDROCHLORIDE
  18. INVEGA SUSTENNA? [Concomitant]
  19. TANDEM T:SLIM X2 INSULIN PUMP [Concomitant]
  20. AUTOSOFT XC INFUSION SETS [Concomitant]
  21. ZINC. [Concomitant]
     Active Substance: ZINC
  22. VITAMIN C [Concomitant]
     Active Substance: ASCORBIC ACID
  23. VITAMIN B12 [Concomitant]
     Active Substance: CYANOCOBALAMIN

REACTIONS (2)
  - Galactorrhoea [None]
  - Hyperprolactinaemia [None]

NARRATIVE: CASE EVENT DATE: 20190510
